FAERS Safety Report 9515377 (Version 3)
Quarter: 2019Q4

REPORT INFORMATION
  Report Type: Report from Study
  Country: FR (occurrence: FR)
  Receive Date: 20130911
  Receipt Date: 20191017
  Transmission Date: 20200122
  Serious: Yes (Other)
  Sender: FDA-Public Use
  Company Number: PHHO2012FR012089

PATIENT
  Age: 48 Year
  Sex: Female
  Weight: 91.2 kg

DRUGS (4)
  1. JANUVIA [Concomitant]
     Active Substance: SITAGLIPTIN PHOSPHATE
     Indication: DIABETES MELLITUS
     Dosage: 100 MG, UNK
     Route: 065
     Dates: start: 20120718, end: 20120808
  2. PASIREOTIDE. [Suspect]
     Active Substance: PASIREOTIDE
     Dosage: DOSE BLINDED
     Route: 030
     Dates: start: 20120816
  3. PASIREOTIDE. [Suspect]
     Active Substance: PASIREOTIDE
     Indication: PITUITARY-DEPENDENT CUSHING^S SYNDROME
     Dosage: DOSE BLINDED
     Route: 030
     Dates: start: 20120416, end: 20120718
  4. TANGANIL [Concomitant]
     Active Substance: ACETYLLEUCINE
     Indication: VERTIGO
     Dosage: 1000 MG, UNK
     Route: 065
     Dates: start: 20120810

REACTIONS (1)
  - Gamma-glutamyltransferase increased [Recovered/Resolved]

NARRATIVE: CASE EVENT DATE: 20120710
